FAERS Safety Report 14893661 (Version 1)
Quarter: 2018Q2

REPORT INFORMATION
  Report Type: Spontaneous
  Country: CA (occurrence: CA)
  Receive Date: 20180514
  Receipt Date: 20180514
  Transmission Date: 20180711
  Serious: Yes (Hospitalization, Other)
  Sender: FDA-Public Use
  Company Number: PHHY2018CA003085

PATIENT
  Sex: Female

DRUGS (1)
  1. SIGNIFOR [Suspect]
     Active Substance: PASIREOTIDE
     Indication: INSULINOMA
     Dosage: 0.6 MG, BID (FOR 60 DAYS)
     Route: 058

REACTIONS (2)
  - Hypoglycaemia [Unknown]
  - Pancytopenia [Unknown]
